FAERS Safety Report 10462033 (Version 3)
Quarter: 2014Q4

REPORT INFORMATION
  Report Type: Spontaneous
  Country: IT (occurrence: IT)
  Receive Date: 20140918
  Receipt Date: 20141121
  Transmission Date: 20150528
  Serious: Yes (Other)
  Sender: FDA-Public Use
  Company Number: IT-ELI_LILLY_AND_COMPANY-IT201409002967

PATIENT
  Age: 47 Year
  Sex: Male

DRUGS (1)
  1. HUMALOG [Suspect]
     Active Substance: INSULIN LISPRO
     Indication: INTENTIONAL SELF-INJURY
     Dosage: 60 IU, SINGLE
     Route: 058
     Dates: start: 20140815, end: 20140815

REACTIONS (5)
  - Hypoglycaemia [Recovering/Resolving]
  - Incorrect dose administered [Recovered/Resolved]
  - Supraventricular tachycardia [Recovering/Resolving]
  - Intentional self-injury [Unknown]
  - Movement disorder [Recovering/Resolving]

NARRATIVE: CASE EVENT DATE: 20140815
